FAERS Safety Report 13465594 (Version 1)
Quarter: 2017Q2

REPORT INFORMATION
  Report Type: Spontaneous
  Country: US (occurrence: US)
  Receive Date: 20170420
  Receipt Date: 20170420
  Transmission Date: 20170830
  Serious: No
  Sender: FDA-Public Use
  Company Number: None

PATIENT
  Age: 50 Year
  Sex: Female

DRUGS (1)
  1. ZARXIO [Suspect]
     Active Substance: FILGRASTIM-SNDZ
     Indication: IMMUNODEFICIENCY COMMON VARIABLE

REACTIONS (3)
  - Escherichia test positive [None]
  - Drug ineffective [None]
  - Sinusitis [None]

NARRATIVE: CASE EVENT DATE: 20170420
